FAERS Safety Report 7418931 (Version 1)
Quarter: 2020Q3

REPORT INFORMATION
  Report Type: Report from Study
  Country: RO (occurrence: RO)
  Receive Date: 20100614
  Receipt Date: 20100614
  Transmission Date: 20201104
  Serious: Yes (Hospitalization)
  Sender: FDA-Public Use
  Company Number: RO-JNJFOC-20080200608

PATIENT
  Age: 64 Year
  Sex: Male
  Weight: 72.5 kg

DRUGS (6)
  1. PALIPERIDONE. [Suspect]
     Active Substance: PALIPERIDONE
     Route: 048
  2. PALIPERIDONE. [Suspect]
     Active Substance: PALIPERIDONE
     Indication: BIPOLAR I DISORDER
     Route: 048
  3. FOLIC ACID. [Concomitant]
     Active Substance: FOLIC ACID
     Indication: ANGINA PECTORIS
     Route: 048
  4. PENTAERITRIL TETRANITRAT [Concomitant]
     Indication: ANGINA PECTORIS
     Route: 048
  5. NITROGLICERYNUM [Concomitant]
     Indication: ANGINA PECTORIS
     Route: 048
  6. DILTIAZEM. [Concomitant]
     Active Substance: DILTIAZEM
     Indication: HYPERTENSION
     Route: 048

REACTIONS (1)
  - Depression [Not Recovered/Not Resolved]

NARRATIVE: CASE EVENT DATE: 20080131
